FAERS Safety Report 9276511 (Version 1)
Quarter: 2013Q2

REPORT INFORMATION
  Report Type: Report from Study
  Country: CA (occurrence: CA)
  Receive Date: 20130507
  Receipt Date: 20130507
  Transmission Date: 20140414
  Serious: Yes (Life-Threatening, Hospitalization)
  Sender: FDA-Public Use
  Company Number: CA-JNJFOC-20130500207

PATIENT
  Age: 51 Year
  Sex: Male

DRUGS (3)
  1. SIMPONI [Suspect]
     Indication: ANKYLOSING SPONDYLITIS
     Route: 065
     Dates: start: 20120822
  2. COUMADIN [Concomitant]
  3. BLOOD PRESSURE MEDICATION NOS [Concomitant]

REACTIONS (1)
  - Cerebrovascular accident [Recovering/Resolving]
